FAERS Safety Report 25358075 (Version 5)
Quarter: 2025Q3

REPORT INFORMATION
  Report Type: Spontaneous
  Country: US (occurrence: US)
  Receive Date: 20250526
  Receipt Date: 20250930
  Transmission Date: 20251020
  Serious: No
  Sender: GLAXOSMITHKLINE
  Company Number: US-GSK-US2025AMR064558

PATIENT
  Sex: Female

DRUGS (1)
  1. NUCALA [Suspect]
     Active Substance: MEPOLIZUMAB
     Indication: Asthma
     Dosage: 100 MG, Q4W
     Dates: start: 202504

REACTIONS (10)
  - Pain [Recovering/Resolving]
  - Paraesthesia oral [Unknown]
  - Chest pain [Recovered/Resolved]
  - Orthostatic hypotension [Unknown]
  - Wheezing [Unknown]
  - Fall [Unknown]
  - Back pain [Unknown]
  - Fatigue [Unknown]
  - Somnolence [Unknown]
  - Chest discomfort [Unknown]
